FAERS Safety Report 7542202-1 (Version None)
Quarter: 2011Q2

REPORT INFORMATION
  Report Type: 
  Country: None (occurrence: None)
  Receive Date: 20110524
  Receipt Date: 20110309
  Transmission Date: 20111010
  Serious: No
  Sender: FDA-Public Use
  Company Number: 028955

PATIENT
  Sex: Male

DRUGS (2)
  1. CIMZIA [Suspect]
     Indication: CROHN'S DISEASE
     Dosage: (SUBCUTANEOUS), ( 1 PRE-FILLED SYRING SUBCUTANEOUS)
     Route: 058
     Dates: start: 20110218
  2. CIMZIA [Suspect]
     Indication: CROHN'S DISEASE
     Dosage: (SUBCUTANEOUS), ( 1 PRE-FILLED SYRING SUBCUTANEOUS)
     Route: 058
     Dates: start: 20100601

REACTIONS (1)
  - DRUG INEFFECTIVE [None]
